FAERS Safety Report 6496497-6 (Version None)
Quarter: 2009Q4

REPORT INFORMATION
  Report Type: 
  Country: None (occurrence: None)
  Receive Date: 20091214
  Receipt Date: 20091209
  Transmission Date: 20100525
  Serious: Yes (Death)
  Sender: FDA-Public Use
  Company Number: EG-SANOFI-AVENTIS-2009SA008108

PATIENT
  Age: 64 Year
  Sex: Male
  Weight: 70 kg

DRUGS (6)
  1. OXALIPLATIN [Suspect]
     Indication: COLON CANCER
     Route: 041
     Dates: start: 20070120, end: 20070120
  2. OXALIPLATIN [Suspect]
     Route: 041
     Dates: start: 20070623, end: 20070623
  3. FLUOROURACIL [Suspect]
     Indication: COLON CANCER
     Route: 042
     Dates: start: 20070120, end: 20070120
  4. FLUOROURACIL [Suspect]
     Route: 042
     Dates: start: 20070623, end: 20070623
  5. LEUCOVORIN CALCIUM [Suspect]
     Indication: COLON CANCER
     Route: 041
     Dates: start: 20070120, end: 20070120
  6. LEUCOVORIN CALCIUM [Suspect]
     Route: 041
     Dates: start: 20070623, end: 20070623

REACTIONS (1)
  - ANAEMIA [None]
